FAERS Safety Report 7680551-7 (Version None)
Quarter: 2011Q3

REPORT INFORMATION
  Report Type: 
  Country: None (occurrence: None)
  Receive Date: 20110812
  Receipt Date: 20110728
  Transmission Date: 20111222
  Serious: Yes (Other)
  Sender: FDA-Public Use
  Company Number: US-BAYER-2011-068024

PATIENT

DRUGS (1)
  1. ALEVE (CAPLET) [Suspect]
     Indication: NERVE INJURY
     Dosage: DAILY DOSE 4 DF
     Route: 048

REACTIONS (1)
  - DRUG ABUSE [None]
